FAERS Safety Report 4437677-0 (Version None)
Quarter: 2004Q3

REPORT INFORMATION
  Report Type: 
  Country: None (occurrence: None)
  Receive Date: 20040831
  Receipt Date: 20030812
  Transmission Date: 20050211
  Serious: No
  Sender: FDA-Public Use
  Company Number: 12592

PATIENT
  Age: 35 Year
  Sex: Female

DRUGS (1)
  1. ZOVIRAX [Suspect]
     Dosage: 5PCT UNKNOWN
     Route: 061
     Dates: start: 20030811, end: 20030811

REACTIONS (4)
  - APPLICATION SITE ERYTHEMA [None]
  - APPLICATION SITE PRURITUS [None]
  - GENITAL BURNING SENSATION [None]
  - HERPES SIMPLEX [None]
